FAERS Safety Report 24301876 (Version 1)
Quarter: 2024Q3

REPORT INFORMATION
  Report Type: Spontaneous
  Country: GB (occurrence: GB)
  Receive Date: 20240910
  Receipt Date: 20240910
  Transmission Date: 20241017
  Serious: Yes (Hospitalization, Other)
  Sender: AUROBINDO
  Company Number: GB-MHRA-MIDB-4035c570-4526-4c0b-a68b-35af2137afec

PATIENT
  Age: 78 Year
  Sex: Male

DRUGS (14)
  1. ALENDRONIC ACID [Suspect]
     Active Substance: ALENDRONIC ACID
     Indication: Product used for unknown indication
     Dosage: 70 MILLIGRAM, EVERY WEEK (07-AUG-2024ON THE SAME DAY EACH WEEK -SATURDAY)
     Route: 065
     Dates: start: 20240807
  2. MIRTAZAPINE [Concomitant]
     Active Substance: MIRTAZAPINE
     Indication: Product used for unknown indication
     Dosage: 15 MILLIGRAM, AT BED TIME (27-JUN-2024**15 MG TABLETS ONE TO BE TAKEN AT NIGHT. 28 TABLET)
     Route: 065
     Dates: start: 20240627
  3. DICLOFENAC DIETHYLAMINE [Concomitant]
     Active Substance: DICLOFENAC DIETHYLAMINE
     Indication: Product used for unknown indication
     Dosage: UNK (21-MAY-2024**1.16% GEL APPLY THREE OR FOUR TIMES A DAY FOR 2 WEEKS 100 GRAM - USES PRN, NOT DAI
     Route: 065
     Dates: start: 20240521
  4. ISOSORBIDE MONONITRATE [Concomitant]
     Active Substance: ISOSORBIDE MONONITRATE
     Indication: Product used for unknown indication
     Dosage: 60 MILLIGRAM, EVERY MORNING (07-AUG-202460 MG TABLETS ONE TO BE TAKEN EACH MORNING  )
     Route: 065
     Dates: start: 20240807
  5. CALCIUM CARBONATE\CHOLECALCIFEROL [Concomitant]
     Active Substance: CALCIUM CARBONATE\CHOLECALCIFEROL
     Indication: Product used for unknown indication
     Dosage: UNK UNK, TWO TIMES A DAY (07-AUG-2024750 MG / 200 UNIT CAPLETS 2 TWICE A DAY)
     Route: 065
     Dates: start: 20240807
  6. ASPIRIN [Concomitant]
     Active Substance: ASPIRIN
     Indication: Product used for unknown indication
     Dosage: 1 DOSAGE FORM, EVERY MORNING (07-AUG-2024)
     Route: 065
     Dates: start: 20240807
  7. ATORVASTATIN [Concomitant]
     Active Substance: ATORVASTATIN
     Indication: Product used for unknown indication
     Dosage: 1 DOSAGE FORM, AT BED TIME (07-AUG-202480 MG TABLETS ONE TO BE TAKEN AT BEDTIME)
     Route: 065
     Dates: start: 20240807
  8. CIPROFLOXACIN [Concomitant]
     Active Substance: CIPROFLOXACIN
     Indication: Product used for unknown indication
     Dosage: 250 MILLIGRAM, TWO TIMES A DAY (**250 MG TABLETS ONE TO BE TAKEN TWICE A DAY (TOTAL 750 MG BD) - STI
     Route: 065
  9. NUTRIZYM 22 [Concomitant]
     Indication: Product used for unknown indication
     Dosage: UNK (07-AUG-2024GASTRO-RESISTANT CAPSULES THREE CAPSULES WITH SNACKS AND FOUR-SIX WITH MEALS - PT SA
     Route: 065
     Dates: start: 20240807
  10. MORPHINE SULFATE [Concomitant]
     Active Substance: MORPHINE SULFATE
     Indication: Product used for unknown indication
     Dosage: UNK (07-AUG-202410 MG / 5 ML ORAL SOLUTION 2.5 MLS TO 5 MLS PRN - PT USES 5MLS PRN)
     Route: 065
     Dates: start: 20240807
  11. ACETAMINOPHEN [Concomitant]
     Active Substance: ACETAMINOPHEN
     Indication: Product used for unknown indication
     Dosage: 500 MILLIGRAM, FOUR TIMES/DAY (07-AUG-2024500 MG TABLETS ONE OR TWO TO BE TAKEN FOUR TIMES DAILY AS
     Route: 065
     Dates: start: 20240807
  12. BUTYLSCOPOLAMINE BROMIDE [Concomitant]
     Active Substance: BUTYLSCOPOLAMINE BROMIDE
     Indication: Product used for unknown indication
     Dosage: 10 MILLIGRAM, FOUR TIMES/DAY (09-JUL-202410 MG TABLETS TWO TO BE TAKEN FOUR TIMES A DAY AS REQUIRED
     Route: 065
     Dates: start: 20240709
  13. HYPROMELLOSES [Concomitant]
     Active Substance: HYPROMELLOSES
     Indication: Product used for unknown indication
     Dosage: UNK (09-JUL-20240.3% EYE DROPS 1-2 DROPS THREE TIMES A DAY AS REQUIRED - QDS PRN)
     Route: 065
     Dates: start: 20240709
  14. CLOBETASONE [Concomitant]
     Active Substance: CLOBETASONE
     Indication: Product used for unknown indication
     Dosage: UNK (11-JUL-2024**0.05% CREAM APPLY TWICE DAILY 30 GRAM - STILL USING, SAID IS RUNNING OUT AS OOS AT
     Route: 065
     Dates: start: 20240711

REACTIONS (1)
  - Otitis externa [Unknown]
